FAERS Safety Report 5211783-5 (Version None)
Quarter: 2007Q1

REPORT INFORMATION
  Report Type: 
  Country: None (occurrence: None)
  Receive Date: 20070112
  Receipt Date: 20070102
  Transmission Date: 20070707
  Serious: Yes (Other)
  Sender: FDA-Public Use
  Company Number: 2006EU003200

PATIENT
  Sex: Male
  Weight: 60 kg

DRUGS (3)
  1. PROTOPIC [Suspect]
     Indication: ECZEMA
     Dosage: 0.1%, BID, TOPICAL
     Route: 061
     Dates: start: 20040101, end: 20060101
  2. ATARAX [Concomitant]
  3. AVEENO ANTI-ITCH (CAMPHOR) [Concomitant]

REACTIONS (4)
  - HYPERSENSITIVITY [None]
  - IMMUNOSUPPRESSION [None]
  - NO THERAPEUTIC RESPONSE [None]
  - SINUSITIS [None]
